FAERS Safety Report 21964108 (Version 2)
Quarter: 2023Q1

REPORT INFORMATION
  Report Type: Report from Study
  Country: CA (occurrence: CA)
  Receive Date: 20230207
  Receipt Date: 20230301
  Transmission Date: 20230417
  Serious: Yes (Hospitalization)
  Sender: FDA-Public Use
  Company Number: CA-HLS-202300235

PATIENT
  Age: 32 Year
  Sex: Male

DRUGS (9)
  1. CLOZARIL [Suspect]
     Active Substance: CLOZAPINE
     Indication: Schizophrenia
     Dosage: (50MG EVERY MORNING, 100MG AT BEDTIME AND 25MG AT BEDTIME = TOTAL DOSE 175MG AT BEDTIME)
     Route: 048
  2. CLOZARIL [Suspect]
     Active Substance: CLOZAPINE
     Indication: Schizophrenia
     Dosage: 25 MG ( 1 TABLET ) TWICE DAILY MORNING AND AT BEDTIME.
     Route: 048
     Dates: start: 20221007, end: 20230201
  3. CITALOPRAM [Concomitant]
     Active Substance: CITALOPRAM HYDROBROMIDE
     Indication: Product used for unknown indication
     Dosage: IN THE MORNING
     Route: 048
  4. RISPERIDONE [Concomitant]
     Active Substance: RISPERIDONE
     Indication: Product used for unknown indication
     Dosage: TWICE DAILY
     Route: 048
  5. FINASTERIDE [Concomitant]
     Active Substance: FINASTERIDE
     Route: 048
  6. TRETINOIN MICROSPHERES [Concomitant]
     Dosage: APPLY TO AFFECTED AREA  TWICE DAILY AS NEEDED
     Route: 065
  7. ZOPICLONE [Concomitant]
     Active Substance: ZOPICLONE
     Dosage: 7.5 TO 15 MG AT BEDTIME AS NEEDED.
     Route: 048
  8. Loxapine Injection [Concomitant]
     Dosage: 10 TO 20 MG IM Q2H AS NEEDED
     Route: 030
  9. LOXAPINE [Concomitant]
     Active Substance: LOXAPINE
     Dosage: 10 TO 20MG EVERY 2 HOURS AS NEEDED
     Route: 048

REACTIONS (5)
  - Anaemia [Unknown]
  - Haematocrit decreased [Unknown]
  - Haemoglobin decreased [Unknown]
  - Mean cell volume decreased [Unknown]
  - Red cell distribution width increased [Unknown]

NARRATIVE: CASE EVENT DATE: 20230128
